FAERS Safety Report 19131599 (Version 2)
Quarter: 2024Q1

REPORT INFORMATION
  Report Type: Spontaneous
  Country: PL (occurrence: PL)
  Receive Date: 20210414
  Receipt Date: 20240314
  Transmission Date: 20240410
  Serious: Yes (Other)
  Sender: FDA-Public Use
  Company Number: PL-CELLTRION INC.-2021PL004600

PATIENT

DRUGS (10)
  1. RITUXIMAB [Suspect]
     Active Substance: RITUXIMAB
     Indication: Follicular lymphoma
     Dosage: 6 CYCLES IN TOTAL
     Route: 042
     Dates: start: 20190315, end: 20190628
  2. PREDNISOLONE [Suspect]
     Active Substance: PREDNISOLONE
     Indication: Follicular lymphoma
     Dosage: 6 CYCLES IN TOTAL
     Route: 065
     Dates: start: 20190315, end: 20190628
  3. BENDAMUSTINE [Suspect]
     Active Substance: BENDAMUSTINE
     Indication: Follicular lymphoma
     Dosage: UNK
     Route: 065
     Dates: start: 20200122, end: 20200609
  4. DOXORUBICIN HYDROCHLORIDE [Suspect]
     Active Substance: DOXORUBICIN HYDROCHLORIDE
     Indication: Follicular lymphoma
     Dosage: 6 CYCLES IN TOTAL
     Route: 065
     Dates: start: 20190315, end: 20190628
  5. OBINUTUZUMAB [Suspect]
     Active Substance: OBINUTUZUMAB
     Indication: Follicular lymphoma
     Dosage: 6 CYCLES
     Route: 065
     Dates: start: 20200122, end: 20200609
  6. CYCLOPHOSPHAMIDE [Suspect]
     Active Substance: CYCLOPHOSPHAMIDE
     Indication: Follicular lymphoma
     Dosage: 6 CYCLES IN TOTAL
     Route: 065
     Dates: start: 20190315, end: 20190628
  7. HYALURONIDASE (HUMAN RECOMBINANT)\RITUXIMAB [Suspect]
     Active Substance: HYALURONIDASE (HUMAN RECOMBINANT)\RITUXIMAB
     Indication: Follicular lymphoma
     Dosage: 3 CYCLE
     Route: 058
     Dates: start: 20190812, end: 20191205
  8. VINCRISTINE SULFATE [Suspect]
     Active Substance: VINCRISTINE SULFATE
     Indication: Follicular lymphoma
     Dosage: 6 CYCLES IN TOTAL
     Route: 065
     Dates: start: 20190315, end: 20190628
  9. ISOPTIN SR [Concomitant]
     Active Substance: VERAPAMIL HYDROCHLORIDE
     Indication: Hypertension
     Dosage: 120 MG
  10. INDAPAMIDE [Concomitant]
     Active Substance: INDAPAMIDE
     Indication: Hypertension
     Dosage: 1.5 MG

REACTIONS (4)
  - Groin pain [Recovered/Resolved]
  - Lymphadenectomy [Unknown]
  - Follicular lymphoma [Unknown]
  - Drug resistance [Unknown]

NARRATIVE: CASE EVENT DATE: 20190527
